FAERS Safety Report 14349242 (Version 2)
Quarter: 2018Q1

REPORT INFORMATION
  Report Type: Spontaneous
  Country: DE (occurrence: DE)
  Receive Date: 20180104
  Receipt Date: 20180131
  Transmission Date: 20180509
  Serious: Yes (Disabling, Other)
  Sender: FDA-Public Use
  Company Number: DE-009507513-1712DEU013643

PATIENT
  Age: 84 Year
  Sex: Male

DRUGS (1)
  1. LOSARTAN POTASSIUM AND HYDROCHLOROTHIAZIDE [Suspect]
     Active Substance: HYDROCHLOROTHIAZIDE\LOSARTAN POTASSIUM
     Indication: PRODUCT USED FOR UNKNOWN INDICATION
     Dosage: IN DECEMBER FOR 4 DAYS

REACTIONS (4)
  - Arthralgia [Unknown]
  - Gait inability [Recovering/Resolving]
  - Diplegia [Recovering/Resolving]
  - Myalgia [Unknown]
